FAERS Safety Report 10521090 (Version 3)
Quarter: 2014Q4

REPORT INFORMATION
  Report Type: Report from Study
  Country: US (occurrence: US)
  Receive Date: 20141016
  Receipt Date: 20141031
  Transmission Date: 20150528
  Serious: Yes (Hospitalization)
  Sender: FDA-Public Use
  Company Number: US-BIOGENIDEC-2014BI104121

PATIENT
  Age: 61 Year
  Sex: Female

DRUGS (4)
  1. AVONEX [Suspect]
     Active Substance: INTERFERON BETA-1A
     Indication: MULTIPLE SCLEROSIS
     Route: 030
     Dates: start: 20080425
  2. TRAMADOL-ACETAMINOPHEN [Concomitant]
  3. DETROL LA [Concomitant]
     Active Substance: TOLTERODINE TARTRATE
  4. ENALAPRIL MALCATE [Concomitant]

REACTIONS (9)
  - Hysterectomy [Recovered/Resolved]
  - Stress [Recovered/Resolved]
  - Gastrointestinal disorder [Recovered/Resolved]
  - Bladder disorder [Recovered/Resolved]
  - Panic reaction [Recovered/Resolved]
  - Confusional state [Recovered/Resolved with Sequelae]
  - Tremor [Recovered/Resolved with Sequelae]
  - Memory impairment [Recovered/Resolved with Sequelae]
  - Intervertebral disc protrusion [Not Recovered/Not Resolved]

NARRATIVE: CASE EVENT DATE: 201403
